FAERS Safety Report 16485693 (Version 1)
Quarter: 2019Q2

REPORT INFORMATION
  Report Type: Spontaneous
  Country: FR (occurrence: FR)
  Receive Date: 20190627
  Receipt Date: 20190627
  Transmission Date: 20190711
  Serious: Yes (Hospitalization)
  Sender: FDA-Public Use
  Company Number: FR-MYLANLABS-2019M1059542

PATIENT
  Age: 69 Year
  Sex: Female
  Weight: 59.5 kg

DRUGS (23)
  1. ADVAGRAF [Concomitant]
     Active Substance: TACROLIMUS
  2. EUPRESSYL                          /00631802/ [Concomitant]
     Active Substance: URAPIDIL HYDROCHLORIDE
  3. AMLOR [Suspect]
     Active Substance: AMLODIPINE BESYLATE
     Indication: HYPERTENSION
     Dosage: 1 DOSAGE FORM, QD
     Route: 048
     Dates: end: 20181219
  4. RILMENIDINE [Concomitant]
     Active Substance: RILMENIDINE
  5. ABSTRAL [Concomitant]
     Active Substance: FENTANYL CITRATE
  6. PIPERACILLIN SODIUM [Concomitant]
     Active Substance: PIPERACILLIN SODIUM
  7. PANTOPRAZOLE [Suspect]
     Active Substance: PANTOPRAZOLE
     Indication: PRODUCT USED FOR UNKNOWN INDICATION
     Dosage: 1 DOSAGE FORM, QD
     Route: 048
     Dates: end: 20181223
  8. PRAVASTATINE SODIUM ACCORD [Concomitant]
     Active Substance: PRAVASTATIN SODIUM
  9. OXYCODONE [Concomitant]
     Active Substance: OXYCODONE
  10. CIPROFLOXACIN. [Concomitant]
     Active Substance: CIPROFLOXACIN
  11. INSULATARD                         /00646002/ [Suspect]
     Active Substance: INSULIN HUMAN
     Indication: DIABETES MELLITUS
     Dosage: 6 INTERNATIONAL UNIT, QD
     Route: 058
     Dates: end: 20181224
  12. LINEZOLIDE [Suspect]
     Active Substance: LINEZOLID
     Indication: OSTEITIS
     Dosage: 1200 MILLIGRAM, QD
     Route: 048
     Dates: start: 20181127, end: 20181219
  13. COLCHICINE. [Suspect]
     Active Substance: COLCHICINE
     Indication: GOUTY TOPHUS
     Dosage: 0.5 MILLIGRAM, QD
     Route: 048
     Dates: start: 20181130, end: 20181219
  14. BISOPROLOL HEMIFUMARATE [Concomitant]
     Active Substance: BISOPROLOL FUMARATE
     Dosage: UNK
  15. PREDNISONE. [Concomitant]
     Active Substance: PREDNISONE
  16. ELIQUIS [Suspect]
     Active Substance: APIXABAN
     Indication: ATRIAL FIBRILLATION
     Dosage: 2 DOSAGE FORM, QD
     Route: 048
     Dates: end: 20181219
  17. DIFFU K [Concomitant]
     Active Substance: POTASSIUM CHLORIDE
  18. HYDROCHLOROTHIAZIDE. [Concomitant]
     Active Substance: HYDROCHLOROTHIAZIDE
  19. METFORMIN [Concomitant]
     Active Substance: METFORMIN HYDROCHLORIDE
  20. FUROSEMIDE. [Concomitant]
     Active Substance: FUROSEMIDE
  21. NICORANDIL [Concomitant]
     Active Substance: NICORANDIL
  22. CELLCEPT [Suspect]
     Active Substance: MYCOPHENOLATE MOFETIL\MYCOPHENOLATE MOFETIL HYDROCHLORIDE
     Indication: RENAL TRANSPLANT
     Dosage: 2 DOSAGE FORM, QD
     Route: 048
     Dates: end: 20181219
  23. IRBESARTAN. [Concomitant]
     Active Substance: IRBESARTAN

REACTIONS (2)
  - Pancytopenia [Recovered/Resolved]
  - Epistaxis [Recovered/Resolved]

NARRATIVE: CASE EVENT DATE: 20181219
